FAERS Safety Report 5656502-3 (Version None)
Quarter: 2008Q1

REPORT INFORMATION
  Report Type: 
  Country: None (occurrence: None)
  Receive Date: 20080309
  Receipt Date: 20080124
  Transmission Date: 20080703
  Serious: No
  Sender: FDA-Public Use
  Company Number: US-BAYER-200810407BCC

PATIENT
  Age: 73 Year
  Sex: Male
  Weight: 75 kg

DRUGS (9)
  1. ALEVE [Suspect]
     Indication: PAIN IN EXTREMITY
     Route: 048
     Dates: start: 20080101
  2. ALLOPURINOL [Concomitant]
  3. EQUATE ASPIRIN [Concomitant]
  4. LIPITOR [Concomitant]
  5. SERTRALINE [Concomitant]
  6. ASCORBIC ACID [Concomitant]
  7. VITAMIN E [Concomitant]
  8. KAYENNE FRUIT [Concomitant]
  9. SAW PALMETTO [Concomitant]

REACTIONS (1)
  - STOMACH DISCOMFORT [None]
